FAERS Safety Report 6398619-4 (Version None)
Quarter: 2009Q4

REPORT INFORMATION
  Report Type: 
  Country: None (occurrence: None)
  Receive Date: 20091007
  Receipt Date: 20090928
  Transmission Date: 20100525
  Serious: Yes (Hospitalization, Other)
  Sender: FDA-Public Use
  Company Number: 2009US002829

PATIENT
  Age: 14 Month
  Sex: Female
  Weight: 7.1 kg

DRUGS (7)
  1. AMBISOME [Suspect]
     Indication: SEPTIC SHOCK
     Dosage: 3 MG/KG, UID/QD
     Dates: start: 20090702, end: 20090713
  2. PROGRAF [Suspect]
     Indication: IMMUNOSUPPRESSION
     Dosage: 0.6 MG, UID/QD, ORAL
     Route: 048
     Dates: start: 20081128
  3. OMEPRAZOLE [Concomitant]
  4. METHYLPREDNISOLONE [Concomitant]
  5. VALGANCICLOVIR HCL [Concomitant]
  6. SULFAMETHOXAZOLE AND TRIMETHOPRIM [Concomitant]
  7. TEICOPLANIN [Concomitant]

REACTIONS (6)
  - CANDIDA SEPSIS [None]
  - CONTINUOUS HAEMODIAFILTRATION [None]
  - CULTURE POSITIVE [None]
  - ERYTHEMA MULTIFORME [None]
  - RENAL FAILURE ACUTE [None]
  - SEPTIC SHOCK [None]
